FAERS Safety Report 24969777 (Version 1)
Quarter: 2025Q1

REPORT INFORMATION
  Report Type: Spontaneous
  Country: US (occurrence: US)
  Receive Date: 20250214
  Receipt Date: 20250214
  Transmission Date: 20250409
  Serious: Yes (Other)
  Sender: ROCHE
  Company Number: US-ROCHE-10000198798

PATIENT
  Age: 28 Year
  Sex: Female

DRUGS (3)
  1. HERCEPTIN [Suspect]
     Active Substance: TRASTUZUMAB
     Indication: HER2 positive breast cancer
     Dosage: THROUGH MEDIPORT
     Route: 042
     Dates: start: 20240824, end: 202411
  2. PERJETA [Suspect]
     Active Substance: PERTUZUMAB
     Indication: HER2 positive breast cancer
     Dosage: THROUGH MEDIPORT
     Route: 042
     Dates: start: 20240824, end: 202411
  3. TAXOTERE [Concomitant]
     Active Substance: DOCETAXEL
     Indication: HER2 positive breast cancer
     Dosage: THROUGH MEDIPORT
     Route: 042
     Dates: start: 20240824, end: 202411

REACTIONS (4)
  - Dermatitis acneiform [Recovering/Resolving]
  - Dysuria [Recovered/Resolved]
  - Neoplasm recurrence [Not Recovered/Not Resolved]
  - Lymphadenopathy [Not Recovered/Not Resolved]

NARRATIVE: CASE EVENT DATE: 20241223
